FAERS Safety Report 5626296-6 (Version None)
Quarter: 2008Q1

REPORT INFORMATION
  Report Type: 
  Country: None (occurrence: None)
  Receive Date: 20080213
  Receipt Date: 20080213
  Transmission Date: 20080703
  Serious: Yes (Life-Threatening, Hospitalization, Disabling)
  Sender: FDA-Public Use
  Company Number: None

PATIENT
  Age: 31 Year
  Sex: Female
  Weight: 72.5755 kg

DRUGS (3)
  1. PREDNISONE TAB [Suspect]
     Indication: ANGIOPLASTY
     Dates: start: 20061007, end: 20061020
  2. PREDNISONE TAB [Suspect]
     Indication: PERICARDITIS
     Dates: start: 20061007, end: 20061020
  3. PREDNISONE TAB [Suspect]
     Indication: POST PROCEDURAL COMPLICATION
     Dates: start: 20061007, end: 20061020

REACTIONS (10)
  - ADDISON'S DISEASE [None]
  - ASTHENIA [None]
  - AUTONOMIC NERVOUS SYSTEM IMBALANCE [None]
  - BLOOD INSULIN INCREASED [None]
  - DIPLOPIA [None]
  - DIZZINESS [None]
  - GLUCOSE TOLERANCE IMPAIRED [None]
  - HEADACHE [None]
  - HYPOGLYCAEMIA [None]
  - ILL-DEFINED DISORDER [None]
